FAERS Safety Report 9475677 (Version 1)
Quarter: 2013Q3

REPORT INFORMATION
  Report Type: Spontaneous
  Country: US (occurrence: None)
  Receive Date: 20130821
  Receipt Date: 20130821
  Transmission Date: 20140515
  Serious: Yes (Hospitalization, Other)
  Sender: FDA-Public Use
  Company Number: US-ZYDUS-002042

PATIENT
  Age: 57 Year
  Sex: Female

DRUGS (2)
  1. TRAMADOL (TRAMADOL) [Suspect]
  2. FLUOXETINE (FLUOXETINE) [Suspect]

REACTIONS (4)
  - Rash morbilliform [None]
  - Serotonin syndrome [None]
  - Tachycardia [None]
  - Blood pressure increased [None]
